FAERS Safety Report 16547025 (Version 1)
Quarter: 2019Q3

REPORT INFORMATION
  Report Type: Report from Study
  Country: IT (occurrence: IT)
  Receive Date: 20190709
  Receipt Date: 20190709
  Transmission Date: 20191004
  Serious: Yes (Other)
  Sender: FDA-Public Use
  Company Number: IT-PFIZER INC-2019254119

PATIENT
  Age: 75 Year
  Sex: Female

DRUGS (3)
  1. PHENOBARBITAL. [Interacting]
     Active Substance: PHENOBARBITAL
     Dosage: UNK
     Route: 065
  2. PANTOPRAZOLE [Suspect]
     Active Substance: PANTOPRAZOLE
     Dosage: UNK
     Route: 065
  3. WARFARIN SODIUM. [Interacting]
     Active Substance: WARFARIN SODIUM
     Indication: DEEP VEIN THROMBOSIS
     Dosage: UNK
     Route: 048

REACTIONS (2)
  - Epistaxis [Recovering/Resolving]
  - Labelled drug-drug interaction medication error [Unknown]
